FAERS Safety Report 25367124 (Version 5)
Quarter: 2025Q4

REPORT INFORMATION
  Report Type: Spontaneous
  Country: JP (occurrence: JP)
  Receive Date: 20250528
  Receipt Date: 20251226
  Transmission Date: 20260118
  Serious: Yes (Death, Other)
  Sender: CELLTRION
  Company Number: JP-CELLTRION INC.-2025JP012665

PATIENT

DRUGS (3)
  1. TRASTUZUMAB [Suspect]
     Active Substance: TRASTUZUMAB
     Indication: Breast cancer stage IV
     Dosage: UNK
     Route: 041
     Dates: start: 20250421, end: 20250421
  2. TRASTUZUMAB [Suspect]
     Active Substance: TRASTUZUMAB
     Dosage: 539 MG EVERY 21 DAYS
     Route: 041
     Dates: start: 20250421
  3. TRASTUZUMAB [Suspect]
     Active Substance: TRASTUZUMAB
     Dosage: 539 MG EVERY 21 DAYS
     Route: 041
     Dates: start: 20250421

REACTIONS (4)
  - Infusion related reaction [Fatal]
  - Breast cancer stage IV [Fatal]
  - Tumour lysis syndrome [Fatal]
  - Intentional product use issue [Unknown]

NARRATIVE: CASE EVENT DATE: 20250421
